FAERS Safety Report 7370777-4 (Version None)
Quarter: 2011Q1

REPORT INFORMATION
  Report Type: 
  Country: None (occurrence: None)
  Receive Date: 20110324
  Receipt Date: 20110315
  Transmission Date: 20110831
  Serious: Yes (Life-Threatening, Other)
  Sender: FDA-Public Use
  Company Number: SI-AMGEN-SVNSP2011014657

PATIENT
  Age: 40 Year
  Sex: Female
  Weight: 67 kg

DRUGS (3)
  1. ENBREL [Suspect]
     Indication: ANKYLOSING SPONDYLITIS
     Dosage: 50 MG, WEEKLY
     Route: 058
     Dates: start: 20101201, end: 20110309
  2. ZALDIAR                            /01625001/ [Concomitant]
     Dosage: TRAMADOL 37,5MG/PARACETAMOL 325 MG, 2X/DAY
     Route: 048
  3. NAKLOFEN                           /00372302/ [Concomitant]
     Dosage: 75 MG, 2X/DAY
     Route: 048

REACTIONS (2)
  - FACE OEDEMA [None]
  - ERYTHEMA [None]
